FAERS Safety Report 14371020 (Version 1)
Quarter: 2018Q1

REPORT INFORMATION
  Report Type: Spontaneous
  Country: US (occurrence: US)
  Receive Date: 20180109
  Receipt Date: 20180109
  Transmission Date: 20180509
  Serious: No
  Sender: FDA-Public Use
  Company Number: None

PATIENT
  Age: 71 Year
  Sex: Male

DRUGS (14)
  1. MELOXICAM. [Concomitant]
     Active Substance: MELOXICAM
  2. RANITIDINE. [Concomitant]
     Active Substance: RANITIDINE
  3. FOLIC ACID. [Concomitant]
     Active Substance: FOLIC ACID
  4. ROSUVASTATIN. [Concomitant]
     Active Substance: ROSUVASTATIN
  5. CEPHALEXIN. [Concomitant]
     Active Substance: CEPHALEXIN
  6. METHOTREXATE. [Concomitant]
     Active Substance: METHOTREXATE
  7. OLMESAMEDOX [Concomitant]
  8. CRESTOR [Concomitant]
     Active Substance: ROSUVASTATIN CALCIUM
  9. LOSARTAN POT [Concomitant]
     Active Substance: LOSARTAN POTASSIUM
  10. NEXIUM [Concomitant]
     Active Substance: ESOMEPRAZOLE MAGNESIUM
  11. SIMPONI [Suspect]
     Active Substance: GOLIMUMAB
     Route: 058
     Dates: start: 20170729
  12. ALLOPURINOL. [Concomitant]
     Active Substance: ALLOPURINOL
  13. METFORMIN [Concomitant]
     Active Substance: METFORMIN HYDROCHLORIDE
  14. HYDRALAZINE [Concomitant]
     Active Substance: HYDRALAZINE HYDROCHLORIDE

REACTIONS (1)
  - Urticaria [None]
